FAERS Safety Report 9244897 (Version 2)
Quarter: 2013Q3

REPORT INFORMATION
  Report Type: Spontaneous
  Country: IE (occurrence: IE)
  Receive Date: 20130422
  Receipt Date: 20130927
  Transmission Date: 20140515
  Serious: Yes (Hospitalization, Other)
  Sender: FDA-Public Use
  Company Number: IE-JNJFOC-20130401682

PATIENT
  Age: 49 Year
  Sex: Female
  Weight: 95.5 kg

DRUGS (7)
  1. DOXORUBICIN HYDROCHLORIDE (CAELYX) [Suspect]
     Indication: OVARIAN CANCER
     Dosage: 2 DOSES TOTAL
     Route: 042
     Dates: start: 20130130, end: 20130226
  2. TRAMADOL [Concomitant]
     Indication: PAIN
     Dosage: TO BE TAKEN AT PM
     Route: 065
  3. ATORVASTATIN [Concomitant]
     Indication: HYPERCHOLESTEROLAEMIA
     Route: 065
  4. METFORMIN [Concomitant]
     Indication: TYPE 2 DIABETES MELLITUS
     Route: 065
  5. CYMBALTA [Concomitant]
     Indication: DEPRESSION
     Route: 065
  6. TAMOXIFEN [Concomitant]
     Indication: PRODUCT USED FOR UNKNOWN INDICATION
     Route: 065
  7. DF118 [Concomitant]
     Indication: PAIN
     Dosage: TO BE TAKEN AT PM
     Route: 065

REACTIONS (7)
  - Rash papular [Recovered/Resolved]
  - Swollen tongue [Recovered/Resolved]
  - Chest pain [Recovered/Resolved]
  - Dysphagia [Recovered/Resolved]
  - Dyspepsia [Recovered/Resolved]
  - Excoriation [Recovered/Resolved]
  - Stomatitis [Recovered/Resolved]
